FAERS Safety Report 4360382-6 (Version None)
Quarter: 2004Q2

REPORT INFORMATION
  Report Type: 
  Country: None (occurrence: None)
  Receive Date: 20040519
  Receipt Date: 20040514
  Transmission Date: 20050107
  Serious: Yes (Hospitalization)
  Sender: FDA-Public Use
  Company Number: FR-MERCK-0405FRA00047

PATIENT
  Age: 35 Year
  Sex: Male

DRUGS (2)
  1. FOSAMAX [Suspect]
     Indication: OSTEOGENESIS IMPERFECTA
     Route: 048
     Dates: start: 20030801, end: 20030901
  2. FLUINDIONE [Concomitant]
     Indication: CARDIAC VALVE DISEASE
     Route: 048

REACTIONS (2)
  - DIVERTICULITIS [None]
  - LARGE INTESTINE PERFORATION [None]
